FAERS Safety Report 5189020-X (Version None)
Quarter: 2006Q4

REPORT INFORMATION
  Report Type: 
  Country: None (occurrence: None)
  Receive Date: 20061215
  Receipt Date: 20061205
  Transmission Date: 20070319
  Serious: Yes (Other)
  Sender: FDA-Public Use
  Company Number: 2005004489

PATIENT
  Age: 74 Year
  Sex: Female
  Weight: 87.5442 kg

DRUGS (12)
  1. LIPITOR [Suspect]
     Indication: BLOOD CHOLESTEROL INCREASED
     Dosage: 10 MG (10 MG, 1 IN 1 D), ORAL
     Route: 048
     Dates: start: 20030501, end: 20040723
  2. LIPITOR [Suspect]
     Indication: CARDIAC FAILURE CONGESTIVE
     Dosage: 10 MG (10 MG, 1 IN 1 D), ORAL
     Route: 048
     Dates: start: 20030501, end: 20040723
  3. PLAVIX [Suspect]
     Indication: VISION BLURRED
     Dosage: 75 MG (75 MG, 1 IN 1 D), ORAL
     Route: 048
     Dates: start: 20040501, end: 20040601
  4. IBUPROFEN [Suspect]
     Indication: VISION BLURRED
     Dosage: 1600 MG (800 MG, 2 IN 1 D), ORAL
     Route: 048
     Dates: start: 20040501, end: 20040501
  5. LISINOPRIL [Concomitant]
  6. TOPROL-XL [Concomitant]
  7. PROTONIX [Concomitant]
  8. LORAZEPAM [Concomitant]
  9. HYDROCHLOROTHIAZIDE WITH TRIAMTERENE (HYDROCHLOROTHIAZIDE, TRIAMTERENE [Concomitant]
  10. ASPIRIN [Concomitant]
  11. PROPACET 100 [Concomitant]
  12. ATENOLOL [Concomitant]

REACTIONS (20)
  - ARTHRALGIA [None]
  - ASTHENIA [None]
  - CARDIAC FAILURE CONGESTIVE [None]
  - DYSPNOEA EXERTIONAL [None]
  - EXERCISE TOLERANCE DECREASED [None]
  - EXTRASYSTOLES [None]
  - EYE HAEMORRHAGE [None]
  - FATIGUE [None]
  - GAIT DISTURBANCE [None]
  - GASTROINTESTINAL MOTILITY DISORDER [None]
  - INFLAMMATION [None]
  - INFLUENZA LIKE ILLNESS [None]
  - MUSCLE TIGHTNESS [None]
  - MYALGIA [None]
  - PAIN IN EXTREMITY [None]
  - RED BLOOD CELL SEDIMENTATION RATE INCREASED [None]
  - RETINAL VASCULAR OCCLUSION [None]
  - TEMPORAL ARTERITIS [None]
  - VISION BLURRED [None]
  - WEIGHT DECREASED [None]
